FAERS Safety Report 5566273-7 (Version None)
Quarter: 2007Q4

REPORT INFORMATION
  Report Type: 
  Country: None (occurrence: None)
  Receive Date: 20071213
  Receipt Date: 20071213
  Transmission Date: 20080405
  Serious: Yes (Hospitalization)
  Sender: FDA-Public Use
  Company Number: None

PATIENT
  Age: 51 Year
  Sex: Male

DRUGS (1)
  1. PHENYTOIN [Suspect]
     Indication: CONVULSION
     Dosage: 100MG QID PO
     Route: 048
     Dates: start: 20070207, end: 20071211

REACTIONS (2)
  - DRUG TOXICITY [None]
  - MENTAL STATUS CHANGES [None]
